FAERS Safety Report 24377513 (Version 1)
Quarter: 2024Q3

REPORT INFORMATION
  Report Type: Spontaneous
  Country: US (occurrence: None)
  Receive Date: 20240927
  Receipt Date: 20240927
  Transmission Date: 20241016
  Serious: Yes (Hospitalization)
  Sender: Public
  Company Number: None

PATIENT
  Age: 59 Year
  Sex: Female
  Weight: 51 kg

DRUGS (1)
  1. ROMOSOZUMAB-AQQG [Suspect]
     Active Substance: ROMOSOZUMAB-AQQG
     Indication: Osteoporosis
     Dates: start: 20230508, end: 20231116

REACTIONS (3)
  - Cerebrovascular accident [None]
  - Retinal artery occlusion [None]
  - Blindness [None]

NARRATIVE: CASE EVENT DATE: 20231113
